FAERS Safety Report 6312291-0 (Version None)
Quarter: 2009Q3

REPORT INFORMATION
  Report Type: 
  Country: None (occurrence: None)
  Receive Date: 20090817
  Receipt Date: 20090805
  Transmission Date: 20100115
  Serious: Yes (Other)
  Sender: FDA-Public Use
  Company Number: NL-WYE-H10529509

PATIENT
  Age: 42 Year
  Sex: Female

DRUGS (2)
  1. PANTOZOL [Suspect]
     Indication: HELICOBACTER INFECTION
     Dosage: UNKNOWN
     Route: 048
  2. MESTINON [Concomitant]
     Dosage: UNKNOWN

REACTIONS (3)
  - ANXIETY [None]
  - DEPRESSION [None]
  - MYASTHENIA GRAVIS [None]
